FAERS Safety Report 4885052-7 (Version None)
Quarter: 2006Q1

REPORT INFORMATION
  Report Type: 
  Country: None (occurrence: None)
  Receive Date: 20060119
  Receipt Date: 20051201
  Transmission Date: 20060701
  Serious: Yes (Death, Hospitalization, Other)
  Sender: FDA-Public Use
  Company Number: US-MERCK-0512USA00519

PATIENT
  Age: 62 Year
  Sex: Male
  Weight: 120 kg

DRUGS (22)
  1. FUROSEMIDE [Concomitant]
     Route: 065
  2. TYLENOL W/ CODEINE [Concomitant]
     Route: 065
  3. VICODIN [Concomitant]
     Route: 065
  4. TRENTAL [Concomitant]
     Route: 065
  5. MAXZIDE [Concomitant]
     Route: 065
  6. ZAROXOLYN [Concomitant]
     Route: 065
  7. LOTENSIN [Concomitant]
     Route: 065
  8. NEURONTIN [Concomitant]
     Route: 065
  9. DARVOCET-N 50 [Concomitant]
     Route: 065
  10. NORVASC [Concomitant]
     Route: 065
  11. VIOXX [Suspect]
     Indication: BACK PAIN
     Route: 048
     Dates: start: 20000522, end: 20010601
  12. VIOXX [Suspect]
     Route: 048
     Dates: start: 20000522, end: 20010601
  13. VIOXX [Suspect]
     Route: 048
     Dates: start: 20000522, end: 20010601
  14. VIOXX [Suspect]
     Route: 048
     Dates: start: 20000522, end: 20010601
  15. CENTRUM SILVER [Concomitant]
     Route: 065
  16. AVANDIA [Concomitant]
     Route: 065
  17. ACIPHEX [Concomitant]
     Route: 065
  18. FERROUS SULFATE [Concomitant]
     Route: 065
  19. GLUCOPHAGE [Concomitant]
     Route: 065
  20. NAPROSYN [Concomitant]
     Route: 065
  21. MICRONASE [Concomitant]
     Route: 065
  22. GLUCOTROL [Concomitant]
     Route: 065

REACTIONS (29)
  - ACUTE MYOCARDIAL INFARCTION [None]
  - ANAEMIA [None]
  - AORTIC VALVE INCOMPETENCE [None]
  - BACK PAIN [None]
  - BUNDLE BRANCH BLOCK LEFT [None]
  - BURSA DISORDER [None]
  - CARDIAC FAILURE CONGESTIVE [None]
  - CORONARY ARTERY OCCLUSION [None]
  - DYSPNOEA [None]
  - DYSPNOEA PAROXYSMAL NOCTURNAL [None]
  - FATIGUE [None]
  - GASTRIC ULCER [None]
  - GASTROINTESTINAL HAEMORRHAGE [None]
  - HAEMATOCHEZIA [None]
  - HIATUS HERNIA [None]
  - HYPERTENSION [None]
  - INTERVERTEBRAL DISC DISORDER [None]
  - ISCHAEMIC CARDIOMYOPATHY [None]
  - JOINT INJURY [None]
  - MITRAL VALVE CALCIFICATION [None]
  - MITRAL VALVE INCOMPETENCE [None]
  - MYOCARDIAL INFARCTION [None]
  - OEDEMA [None]
  - OEDEMA PERIPHERAL [None]
  - PAIN IN EXTREMITY [None]
  - PRESCRIBED OVERDOSE [None]
  - PYREXIA [None]
  - UPPER RESPIRATORY TRACT INFECTION [None]
  - VENTRICULAR DYSFUNCTION [None]
